FAERS Safety Report 8439386 (Version 2)
Quarter: 2013Q2

REPORT INFORMATION
  Report Type: Spontaneous
  Country: US (occurrence: None)
  Receive Date: 20120104
  Receipt Date: 20120508
  Transmission Date: 20140414
  Serious: Yes (Other)
  Sender: FDA-Public Use
  Company Number: 2011HGS-002842

PATIENT
  Sex: Female

DRUGS (2)
  1. BENLYSTA [Suspect]
     Indication: SYSTEMIC LUPUS ERYTHEMATOSUS
     Dosage: 1040 MG, 1 IN 14 D, INTRAVENOUS DRIP
     Route: 041
  2. BENLYSTA [Suspect]
     Indication: CUTANEOUS LUPUS ERYTHEMATOSUS
     Dosage: 1040 MG, 1 IN 14 D, INTRAVENOUS DRIP
     Route: 041

REACTIONS (6)
  - THROAT IRRITATION [None]
  - ANXIETY [None]
  - AGITATION [None]
  - IRRITABILITY [None]
  - Depression [None]
  - Hepatic enzyme increased [None]
